FAERS Safety Report 9726460 (Version 2)
Quarter: 2013Q4

REPORT INFORMATION
  Report Type: Spontaneous
  Country: US (occurrence: US)
  Receive Date: 20131203
  Receipt Date: 20131216
  Transmission Date: 20140711
  Serious: Yes (Hospitalization)
  Sender: FDA-Public Use
  Company Number: US-PFIZER INC-2013341042

PATIENT
  Sex: Female

DRUGS (3)
  1. ADVIL [Suspect]
     Indication: HEADACHE
     Dosage: 200 MG, UNK
     Route: 048
  2. ADVIL [Suspect]
     Dosage: 600 MG (THREE TABLETS OF 200MG)
     Route: 048
     Dates: start: 20131127
  3. ABILIFY [Concomitant]
     Indication: DEPRESSION
     Dosage: 10 MG, UNK

REACTIONS (2)
  - Incorrect dose administered [Unknown]
  - Depression [Unknown]
